FAERS Safety Report 23318646 (Version 2)
Quarter: 2024Q1

REPORT INFORMATION
  Report Type: Other
  Country: US (occurrence: None)
  Receive Date: 20231220
  Receipt Date: 20240130
  Transmission Date: 20240409
  Serious: Yes (Other)
  Sender: FDA-Public Use
  Company Number: US-ROCHE-3423690

PATIENT
  Age: 35 Year
  Sex: Female
  Weight: 113.5 kg

DRUGS (22)
  1. OCREVUS [Suspect]
     Active Substance: OCRELIZUMAB
     Indication: Relapsing-remitting multiple sclerosis
     Dosage: DATE OF TREATMENT: 12/NOV/2021, 26/NOV/2021
     Route: 041
     Dates: start: 202111, end: 2022
  2. OCREVUS [Suspect]
     Active Substance: OCRELIZUMAB
     Dosage: STRENGTH: 300 MG/10 ML?DATE OF TREATMENT: 13/MAY/2022, 14/NOV/2022, 25/APR/2023, 18/DEC/2023
     Route: 041
     Dates: start: 2022
  3. ADDERALL [Concomitant]
     Active Substance: AMPHETAMINE ASPARTATE\AMPHETAMINE SULFATE\DEXTROAMPHETAMINE SACCHARATE\DEXTROAMPHETAMINE SULFATE
     Indication: Attention deficit hyperactivity disorder
     Route: 048
     Dates: start: 2023
  4. ADDERALL [Concomitant]
     Active Substance: AMPHETAMINE ASPARTATE\AMPHETAMINE SULFATE\DEXTROAMPHETAMINE SACCHARATE\DEXTROAMPHETAMINE SULFATE
     Indication: Multiple sclerosis
  5. LACOSAMIDE [Concomitant]
     Active Substance: LACOSAMIDE
     Route: 048
     Dates: start: 2022
  6. ZOFRAN [Concomitant]
     Active Substance: ONDANSETRON HYDROCHLORIDE
     Indication: Nausea
     Route: 048
     Dates: start: 2018
  7. BUSPIRONE [Concomitant]
     Active Substance: BUSPIRONE HYDROCHLORIDE
     Indication: Anxiety
     Route: 048
  8. PREGABALIN [Concomitant]
     Active Substance: PREGABALIN
     Indication: Neuralgia
     Route: 048
  9. DULOXETINE [Concomitant]
     Active Substance: DULOXETINE
     Indication: Depression
     Route: 048
  10. DULOXETINE [Concomitant]
     Active Substance: DULOXETINE
     Indication: Neuralgia
  11. TIZANIDINE [Concomitant]
     Active Substance: TIZANIDINE
     Indication: Muscle spasms
     Dosage: TAKES IN THE EVENING
     Route: 048
     Dates: start: 2021
  12. BACLOFEN [Concomitant]
     Active Substance: BACLOFEN
     Indication: Muscle spasms
     Route: 048
     Dates: start: 2021
  13. PRAZOSIN [Concomitant]
     Active Substance: PRAZOSIN
     Dosage: TAKES AT NIGHT
     Route: 048
     Dates: start: 2018
  14. PRAZOSIN [Concomitant]
     Active Substance: PRAZOSIN
     Dosage: TOOK AT NIGHT?ONGOING: NO
     Route: 048
     Dates: start: 2017, end: 2018
  15. CALCIUM CITRATE [Concomitant]
     Active Substance: CALCIUM CITRATE
     Dosage: TAKES 2 PILLS, FOUR TIMES PER DAY
     Route: 048
     Dates: start: 2018
  16. VITAMIN A [Concomitant]
     Active Substance: VITAMIN A
     Route: 048
     Dates: start: 2018
  17. BIOTIN [Concomitant]
     Active Substance: BIOTIN
     Dosage: TAKES 2 PILLS, ONCE A DAY
     Route: 048
     Dates: start: 2018
  18. VITAMIN D3 [Concomitant]
     Active Substance: CHOLECALCIFEROL
     Route: 048
     Dates: start: 2018
  19. CYANOCOBALAMIN\DEXPANTHENOL\NIACINAMIDE\PYRIDOXINE HYDROCHLORIDE\RIBOF [Concomitant]
     Active Substance: CYANOCOBALAMIN\DEXPANTHENOL\NIACINAMIDE\PYRIDOXINE HYDROCHLORIDE\RIBOFLAVIN 5^-PHOSPHATE SODIUM\THIA
     Route: 048
     Dates: start: 2018
  20. ZINC [Concomitant]
     Active Substance: PYRITHIONE ZINC\ZINC\ZINC CHLORIDE
     Dosage: TAKES AT NIGHT WITH MAGNESIUM
     Route: 048
     Dates: start: 2018
  21. LEVOMEFOLIC ACID [Concomitant]
     Active Substance: LEVOMEFOLIC ACID
     Route: 048
     Dates: start: 202309
  22. CALCIUM POLYCARBOPHIL [Concomitant]
     Active Substance: CALCIUM POLYCARBOPHIL
     Dosage: TAKES 2 TABLETS, TWICE A DAY
     Route: 048
     Dates: start: 2018

REACTIONS (10)
  - Localised infection [Not Recovered/Not Resolved]
  - Splinter [Recovered/Resolved]
  - Limb injury [Recovering/Resolving]
  - Peripheral swelling [Recovering/Resolving]
  - Ataxia [Recovered/Resolved]
  - Speech disorder [Recovered/Resolved]
  - Panic attack [Recovered/Resolved]
  - Pain in extremity [Recovering/Resolving]
  - Multiple sclerosis [Not Recovered/Not Resolved]
  - Illness [Unknown]

NARRATIVE: CASE EVENT DATE: 20220101
